FAERS Safety Report 10559727 (Version 1)
Quarter: 2014Q4

REPORT INFORMATION
  Report Type: Spontaneous
  Country: US (occurrence: None)
  Receive Date: 20141030
  Receipt Date: 20141030
  Transmission Date: 20150529
  Serious: Yes (Hospitalization)
  Sender: FDA-Public Use
  Company Number: AEGR000831

PATIENT
  Age: 76 Year
  Sex: Female
  Weight: 71.7 kg

DRUGS (1)
  1. JUXTAPID [Suspect]
     Active Substance: LOMITAPIDE MESYLATE
     Indication: TYPE IIA HYPERLIPIDAEMIA
     Route: 048
     Dates: start: 20141010, end: 20141013

REACTIONS (4)
  - Palpitations [None]
  - Abdominal pain upper [None]
  - Blood pressure decreased [None]
  - Diarrhoea [None]

NARRATIVE: CASE EVENT DATE: 20141011
